FAERS Safety Report 4828700-X (Version None)
Quarter: 2005Q4

REPORT INFORMATION
  Report Type: 
  Country: None (occurrence: None)
  Receive Date: 20051115
  Receipt Date: 20050930
  Transmission Date: 20060501
  Serious: Yes (Hospitalization)
  Sender: FDA-Public Use
  Company Number: US-MERCK-0510USA01947

PATIENT
  Age: 82 Year
  Sex: Female
  Weight: 77 kg

DRUGS (12)
  1. VIOXX [Suspect]
     Indication: ARTHRITIS
     Route: 048
     Dates: start: 20040220, end: 20040704
  2. ACTONEL [Concomitant]
     Route: 065
  3. LORATADINE [Concomitant]
     Route: 065
  4. DETROL LA [Concomitant]
     Route: 065
  5. ESTROPIPATE [Concomitant]
     Route: 065
  6. EVISTA [Concomitant]
     Route: 065
  7. FLONASE [Concomitant]
     Route: 065
  8. ISOSORBIDE [Concomitant]
     Route: 065
  9. LIPITOR [Concomitant]
     Route: 065
  10. PLAVIX [Concomitant]
     Route: 065
  11. SYNTHROID [Concomitant]
     Route: 065
  12. TRIAMTERENE [Concomitant]
     Route: 065

REACTIONS (3)
  - CEREBROVASCULAR ACCIDENT [None]
  - ISCHAEMIC STROKE [None]
  - TRANSIENT ISCHAEMIC ATTACK [None]
